FAERS Safety Report 5404332-X (Version None)
Quarter: 2007Q3

REPORT INFORMATION
  Report Type: 
  Country: None (occurrence: None)
  Receive Date: 20070713
  Receipt Date: 20060922
  Transmission Date: 20080115
  Serious: No
  Sender: FDA-Public Use
  Company Number: 419458

PATIENT
  Age: 54 Year
  Sex: Female
  Weight: 75.3 kg

DRUGS (5)
  1. BONIVA [Suspect]
     Indication: DRUG USE FOR UNKNOWN INDICATION
     Dosage: 1 PER MONTH ORAL
     Route: 048
     Dates: start: 20050927
  2. MULTIVITAMINS W/IRON + CALCIUM (CALCIUM/IRON NOS/MULTIVITAMIN NOS) [Concomitant]
  3. LEXAPRO [Concomitant]
  4. NEXIUM [Concomitant]
  5. CARAFATE [Concomitant]

REACTIONS (7)
  - BONE PAIN [None]
  - INFLUENZA LIKE ILLNESS [None]
  - MUSCULOSKELETAL CHEST PAIN [None]
  - MUSCULOSKELETAL PAIN [None]
  - ROTATOR CUFF SYNDROME [None]
  - TENDONITIS [None]
  - TOOTH ABSCESS [None]
